FAERS Safety Report 5262276-0 (Version None)
Quarter: 2007Q1

REPORT INFORMATION
  Report Type: 
  Country: None (occurrence: None)
  Receive Date: 20070308
  Receipt Date: 20070308
  Transmission Date: 20070707
  Serious: Yes (Other)
  Sender: FDA-Public Use
  Company Number: None

PATIENT
  Age: 48 Year
  Sex: Female
  Weight: 54.8852 kg

DRUGS (1)
  1. CIPROFLOXACIN [Suspect]
     Indication: URINARY TRACT INFECTION
     Dosage: 250 MG BID PO
     Route: 048
     Dates: start: 20060822, end: 20060829

REACTIONS (8)
  - ARTHRALGIA [None]
  - BURNING SENSATION [None]
  - FATIGUE [None]
  - FEELING HOT [None]
  - NEUROPATHY PERIPHERAL [None]
  - PALPITATIONS [None]
  - PARAESTHESIA [None]
  - TINNITUS [None]
